FAERS Safety Report 4540614-1 (Version None)
Quarter: 2004Q4

REPORT INFORMATION
  Report Type: 
  Country: None (occurrence: None)
  Receive Date: 20041222
  Receipt Date: 20041206
  Transmission Date: 20050328
  Serious: Yes (Other)
  Sender: FDA-Public Use
  Company Number: GBS041116007

PATIENT
  Age: 55 Year
  Sex: Male
  Weight: 73 kg

DRUGS (3)
  1. CIALIS [Suspect]
     Indication: ERECTILE DYSFUNCTION
     Dosage: 10 MG/1 WEEK
     Dates: start: 20041104, end: 20041104
  2. BENDROFLUAZIDE [Concomitant]
  3. TOBY MULTI VITAMIN [Concomitant]

REACTIONS (1)
  - PENILE SWELLING [None]
